FAERS Safety Report 4923787-8 (Version None)
Quarter: 2006Q1

REPORT INFORMATION
  Report Type: 
  Country: None (occurrence: None)
  Receive Date: 20060227
  Receipt Date: 20050816
  Transmission Date: 20060701
  Serious: Yes (Hospitalization, Disabling)
  Sender: FDA-Public Use
  Company Number: US-MERCK-0508USA03082

PATIENT
  Age: 31 Year
  Sex: Male
  Weight: 105 kg

DRUGS (1)
  1. VIOXX [Suspect]
     Indication: PAIN
     Route: 048
     Dates: start: 19990101, end: 20021001

REACTIONS (6)
  - ADVERSE EVENT [None]
  - AMNESIA [None]
  - CEREBROVASCULAR ACCIDENT [None]
  - EMBOLISM [None]
  - HYPERTENSIVE HEART DISEASE [None]
  - LUNG INFILTRATION [None]
